FAERS Safety Report 7400085-4 (Version None)
Quarter: 2011Q2

REPORT INFORMATION
  Report Type: 
  Country: None (occurrence: None)
  Receive Date: 20110407
  Receipt Date: 20100318
  Transmission Date: 20111010
  Serious: Yes (Other)
  Sender: FDA-Public Use
  Company Number: PHHY2010DE90757

PATIENT

DRUGS (1)
  1. EXTAVIA [Suspect]
     Route: 058

REACTIONS (4)
  - BACK PAIN [None]
  - ANXIETY [None]
  - INJECTION SITE ERYTHEMA [None]
  - INTERVERTEBRAL DISC PROTRUSION [None]
